FAERS Safety Report 4639554-9 (Version None)
Quarter: 2005Q2

REPORT INFORMATION
  Report Type: 
  Country: None (occurrence: None)
  Receive Date: 20050415
  Receipt Date: 20050401
  Transmission Date: 20051028
  Serious: Yes (Hospitalization)
  Sender: FDA-Public Use
  Company Number: 200509264

PATIENT
  Age: 4 Year
  Sex: Male

DRUGS (1)
  1. HUMATE-P [Suspect]
     Indication: DRUG THERAPY
     Dates: start: 20050101

REACTIONS (8)
  - ABDOMINAL PAIN [None]
  - CATHETER RELATED INFECTION [None]
  - HYPOTENSION [None]
  - SEPSIS [None]
  - SOMNOLENCE [None]
  - SPLEEN PALPABLE [None]
  - URTICARIA [None]
  - VOMITING [None]
